FAERS Safety Report 7722476-4 (Version None)
Quarter: 2011Q3

REPORT INFORMATION
  Report Type: 
  Country: None (occurrence: None)
  Receive Date: 20110831
  Receipt Date: 20110816
  Transmission Date: 20111222
  Serious: Yes (Other)
  Sender: FDA-Public Use
  Company Number: US-BAYER-2011-075664

PATIENT
  Age: 60 Year
  Sex: Male
  Weight: 89.342 kg

DRUGS (11)
  1. CENTRUM [Concomitant]
  2. PLAVIX [Concomitant]
  3. NEXIUM [Concomitant]
  4. ALEVE (CAPLET) [Suspect]
     Indication: BACK PAIN
     Dosage: 2 DF, QD, BOTTLE COUNT 100S
     Route: 048
     Dates: start: 20110812, end: 20110815
  5. ADVIL LIQUI-GELS [Concomitant]
  6. PRAVASTATIN [Concomitant]
  7. QUINAPRIL HCL [Concomitant]
  8. ASPIRIN [Concomitant]
  9. DULCOLAX [Concomitant]
  10. LANTUS [Concomitant]
  11. FISH OIL [Concomitant]

REACTIONS (1)
  - FAECES DISCOLOURED [None]
